FAERS Safety Report 18460881 (Version 2)
Quarter: 2020Q4

REPORT INFORMATION
  Report Type: Spontaneous
  Country: KR (occurrence: KR)
  Receive Date: 20201104
  Receipt Date: 20201111
  Transmission Date: 20210114
  Serious: Yes (Other)
  Sender: FDA-Public Use
  Company Number: KR-REGENERON PHARMACEUTICALS, INC.-2020-86399

PATIENT

DRUGS (1)
  1. EYLEA [Suspect]
     Active Substance: AFLIBERCEPT
     Indication: PRODUCT USED FOR UNKNOWN INDICATION
     Dosage: TOTAL DOSE OF EYLEA PRIOR TO THE EVENT IS UNK. DATE OF LAST DOSE OF EYLEA PRIOR TO THE EVENT IS UNK
     Route: 031

REACTIONS (1)
  - Haemorrhage [Unknown]
